FAERS Safety Report 16174401 (Version 1)
Quarter: 2019Q2

REPORT INFORMATION
  Report Type: Spontaneous
  Country: ES (occurrence: ES)
  Receive Date: 20190409
  Receipt Date: 20190409
  Transmission Date: 20190711
  Serious: Yes (Other)
  Sender: FDA-Public Use
  Company Number: ES-B.I. PHARMACEUTICALS,INC./RIDGEFIELD-2019-12-001169

PATIENT
  Age: 67 Year
  Sex: Male
  Weight: 111 kg

DRUGS (8)
  1. TOUJEO [Concomitant]
     Active Substance: INSULIN GLARGINE
     Indication: TYPE 2 DIABETES MELLITUS
     Dosage: 26 IU AT DINNER, 0 IU AT LUNCH, 0 IU AT BREAKFAST
     Route: 058
     Dates: start: 20180411
  2. OMEPRAZOL [Concomitant]
     Active Substance: OMEPRAZOLE
     Indication: PROPHYLACTIC CHEMOTHERAPY
     Dosage: 1 CAPSULE EVERY DAY
     Route: 048
     Dates: start: 20131029
  3. VALS [Concomitant]
     Indication: ESSENTIAL HYPERTENSION
     Dosage: 1 TABLET EVERY DAY
     Route: 048
     Dates: start: 20180618
  4. ACIDO ACETILSALICILICO APOTEX [Concomitant]
     Indication: ATRIAL FIBRILLATION
     Dosage: 1 TABLET EVERY DAY
     Route: 048
     Dates: start: 20150908
  5. COROPRES [Concomitant]
     Active Substance: CARVEDILOL
     Indication: ESSENTIAL HYPERTENSION
     Dosage: 1 TABLET EVERY DAY
     Route: 048
     Dates: start: 20150709
  6. SIMVASTATINA [Concomitant]
     Active Substance: SIMVASTATIN
     Indication: PROPHYLACTIC CHEMOTHERAPY
     Dosage: 1 TABLET EVERY DAY
     Route: 048
     Dates: start: 20140820
  7. ZALDIAR [Concomitant]
     Active Substance: ACETAMINOPHEN\TRAMADOL HYDROCHLORIDE
     Indication: BURSITIS
     Dosage: 1 TABLET EVERY 12 HOURS
     Route: 048
     Dates: start: 20181003, end: 20181204
  8. SYNJARDY [Suspect]
     Active Substance: EMPAGLIFLOZIN\METFORMIN HYDROCHLORIDE
     Indication: TYPE 2 DIABETES MELLITUS
     Dosage: 1 TABLET EVERY 12 HOURS
     Route: 048
     Dates: start: 20180529, end: 20181107

REACTIONS (2)
  - Fall [Recovering/Resolving]
  - Balanitis candida [Recovered/Resolved]

NARRATIVE: CASE EVENT DATE: 20180719
